FAERS Safety Report 20731331 (Version 2)
Quarter: 2022Q2

REPORT INFORMATION
  Report Type: Spontaneous
  Country: GB (occurrence: GB)
  Receive Date: 20220420
  Receipt Date: 20220505
  Transmission Date: 20220721
  Serious: Yes (Other)
  Sender: FDA-Public Use
  Company Number: GB-ANIPHARMA-2022-UK-000092

PATIENT
  Age: 73 Year
  Sex: Female
  Weight: 56 kg

DRUGS (8)
  1. CANDESARTAN CILEXETIL [Suspect]
     Active Substance: CANDESARTAN CILEXETIL
     Indication: Product used for unknown indication
     Dosage: 2 MG DAILY
     Route: 048
     Dates: start: 20220221, end: 20220321
  2. VITAMIN D3 [Concomitant]
     Active Substance: CHOLECALCIFEROL
     Dosage: TAKE TWO ON THE SAME DAY EACH WEEK FOR 7 WEEKS
     Route: 065
     Dates: start: 20220125, end: 20220315
  3. LACIDIPINE [Concomitant]
     Active Substance: LACIDIPINE
     Dosage: 1 DF DAILY
     Route: 065
     Dates: start: 20220128, end: 20220130
  4. LANSOPRAZOLE [Suspect]
     Active Substance: LANSOPRAZOLE
     Dosage: 1 DF DAILY
     Route: 065
     Dates: start: 20220226, end: 20220326
  5. LISINOPRIL [Concomitant]
     Active Substance: LISINOPRIL
     Dosage: 1 DF DAILY
     Route: 065
     Dates: start: 20220314, end: 20220411
  6. RANITIDINE [Suspect]
     Active Substance: RANITIDINE
     Dosage: 1 DF BID
     Route: 065
     Dates: start: 20220226, end: 20220226
  7. TRAZODONE [Suspect]
     Active Substance: TRAZODONE HYDROCHLORIDE
     Dosage: TAKE ONE IN THE EVENING FOR 1 WEEK THEN AN TAKE
     Route: 065
     Dates: start: 20220117, end: 20220214
  8. CARBOMER [Concomitant]
     Active Substance: CARBOMER
     Dosage: ONE DROP QDS BOTH EYES
     Route: 065
     Dates: start: 20200904

REACTIONS (2)
  - Headache [Recovered/Resolved]
  - Gastrooesophageal reflux disease [Unknown]

NARRATIVE: CASE EVENT DATE: 20220413
